FAERS Safety Report 11096184 (Version 1)
Quarter: 2015Q2

REPORT INFORMATION
  Report Type: Spontaneous
  Country: GB (occurrence: GB)
  Receive Date: 20150507
  Receipt Date: 20150507
  Transmission Date: 20150821
  Serious: Yes (Hospitalization, Other)
  Sender: FDA-Public Use
  Company Number: GB-TEVA-559868ACC

PATIENT
  Age: 13 Year
  Sex: Female
  Weight: 44 kg

DRUGS (4)
  1. FLUOXETINE [Concomitant]
     Active Substance: FLUOXETINE\FLUOXETINE HYDROCHLORIDE
     Indication: ANXIETY
     Dates: start: 201312
  2. FLUOXETINE [Concomitant]
     Active Substance: FLUOXETINE\FLUOXETINE HYDROCHLORIDE
     Indication: AGGRESSION
  3. RISPERIDONE. [Suspect]
     Active Substance: RISPERIDONE
     Indication: AGGRESSION
  4. RISPERIDONE. [Suspect]
     Active Substance: RISPERIDONE
     Indication: ANXIETY
     Dosage: 0.75MG TOTAL DOSE (0.25MG EVERY MORNING, 0.5MG AT NIGHT)
     Route: 048
     Dates: start: 20140617, end: 20150223

REACTIONS (8)
  - Blood sodium increased [Unknown]
  - Syncope [Unknown]
  - Communication disorder [Unknown]
  - Blood cortisol increased [Unknown]
  - Liver function test abnormal [Unknown]
  - Hypothermia [Recovered/Resolved with Sequelae]
  - Malaise [Unknown]
  - Gait disturbance [Unknown]

NARRATIVE: CASE EVENT DATE: 20141215
